FAERS Safety Report 6398688-1 (Version None)
Quarter: 2009Q4

REPORT INFORMATION
  Report Type: 
  Country: None (occurrence: None)
  Receive Date: 20091013
  Receipt Date: 20091006
  Transmission Date: 20100525
  Serious: Yes (Hospitalization)
  Sender: FDA-Public Use
  Company Number: JP-JNJFOC-20091003547

PATIENT
  Age: 23 Year
  Sex: Female

DRUGS (3)
  1. TOPINA [Suspect]
     Indication: ENCEPHALITIS
     Route: 048
     Dates: start: 20090525
  2. PHENYTOIN [Concomitant]
     Route: 048
  3. CARBAMAZEPINE [Concomitant]
     Route: 048

REACTIONS (2)
  - CONVULSION [None]
  - HYPERAMMONAEMIA [None]
